FAERS Safety Report 6213468-5 (Version None)
Quarter: 2009Q2

REPORT INFORMATION
  Report Type: 
  Country: None (occurrence: None)
  Receive Date: 20090603
  Receipt Date: 20090522
  Transmission Date: 20091009
  Serious: Yes (Other)
  Sender: FDA-Public Use
  Company Number: US-PFIZER INC-2009218796

PATIENT
  Sex: Male

DRUGS (1)
  1. PROVERA [Suspect]
     Dosage: UNK
     Route: 064
     Dates: start: 19881001

REACTIONS (22)
  - ABDOMINAL DISCOMFORT [None]
  - ABDOMINAL PAIN LOWER [None]
  - ALOPECIA [None]
  - AMNESIA [None]
  - ARTHRALGIA [None]
  - BALANCE DISORDER [None]
  - DIZZINESS [None]
  - DRUG EXPOSURE DURING PREGNANCY [None]
  - DYSARTHRIA [None]
  - DYSPEPSIA [None]
  - FATIGUE [None]
  - HEADACHE [None]
  - HEARING IMPAIRED [None]
  - LYME DISEASE [None]
  - MUSCLE DISORDER [None]
  - MUSCULOSKELETAL CHEST PAIN [None]
  - NIGHT SWEATS [None]
  - PAIN [None]
  - PALPITATIONS [None]
  - PHOTOPHOBIA [None]
  - SLEEP DISORDER [None]
  - TREMOR [None]
